FAERS Safety Report 12867366 (Version 2)
Quarter: 2016Q4

REPORT INFORMATION
  Report Type: Report from Study
  Country: None (occurrence: AE)
  Receive Date: 20161020
  Receipt Date: 20161108
  Transmission Date: 20170207
  Serious: Yes (Other)
  Sender: FDA-Public Use
  Company Number: AE-ABBVIE-16P-166-1759016-00

PATIENT
  Age: 28 Year
  Sex: Female
  Weight: 52 kg

DRUGS (3)
  1. VIEKIRAX [Suspect]
     Active Substance: OMBITASVIR\PARITAPREVIR\RITONAVIR
     Indication: HEPATITIS C
     Route: 048
     Dates: start: 20160805, end: 20161027
  2. COPEGUS [Concomitant]
     Active Substance: RIBAVIRIN
     Indication: HEPATITIS C
     Dosage: 2 TABLETS IN THE MORNING 1 IN THE EVENING
     Route: 048
     Dates: start: 20160805, end: 20161027
  3. EXVIERA [Suspect]
     Active Substance: DASABUVIR
     Indication: HEPATITIS C
     Route: 048
     Dates: start: 20160805, end: 20161027

REACTIONS (3)
  - Vomiting [Recovered/Resolved]
  - Gastric haemorrhage [Recovered/Resolved]
  - Gastritis [Unknown]

NARRATIVE: CASE EVENT DATE: 20161018
